FAERS Safety Report 7111495-7 (Version None)
Quarter: 2010Q4

REPORT INFORMATION
  Report Type: 
  Country: None (occurrence: None)
  Receive Date: 20101118
  Receipt Date: 20101105
  Transmission Date: 20110411
  Serious: Yes (Other)
  Sender: FDA-Public Use
  Company Number: AU-CELGENEUS-008-21880-10110724

PATIENT
  Sex: Female
  Weight: 71 kg

DRUGS (6)
  1. REVLIMID [Suspect]
     Indication: MULTIPLE MYELOMA
     Route: 048
     Dates: start: 20100611, end: 20100909
  2. OSTELIN [Concomitant]
     Route: 048
     Dates: start: 20100818
  3. ZOMETA [Concomitant]
     Route: 051
  4. CALCIUM CARBONATE [Concomitant]
     Route: 048
     Dates: start: 20100818
  5. ESOMEPRAZOLE [Concomitant]
     Route: 048
  6. OXYCONTIN [Concomitant]
     Route: 048
     Dates: start: 20090601

REACTIONS (1)
  - AUTOIMMUNE PANCYTOPENIA [None]
